FAERS Safety Report 19068015 (Version 1)
Quarter: 2021Q1

REPORT INFORMATION
  Report Type: Spontaneous
  Country: IT (occurrence: IT)
  Receive Date: 20210329
  Receipt Date: 20210329
  Transmission Date: 20210420
  Serious: Yes (Other)
  Sender: FDA-Public Use
  Company Number: IT-MYLANLABS-2021M1017826

PATIENT
  Sex: Male

DRUGS (1)
  1. SEVELAMER MYLAN 800 MG FILMDRAGERADE TABLETTER [Suspect]
     Active Substance: SEVELAMER CARBONATE
     Indication: PRODUCT USED FOR UNKNOWN INDICATION
     Dosage: UNK

REACTIONS (4)
  - Faecaloma [Unknown]
  - Product quality issue [Unknown]
  - Constipation [Unknown]
  - Anal haemorrhage [Unknown]
